FAERS Safety Report 16924256 (Version 1)
Quarter: 2019Q4

REPORT INFORMATION
  Report Type: Spontaneous
  Country: US (occurrence: US)
  Receive Date: 20190823
  Receipt Date: 20190823
  Transmission Date: 20200122
  Serious: No
  Sender: FDA-Public Use
  Company Number: None

PATIENT
  Age: 62 Year
  Sex: Female

DRUGS (1)
  1. ENBREL [Suspect]
     Active Substance: ETANERCEPT
     Route: 058
     Dates: start: 201908

REACTIONS (4)
  - Peripheral swelling [None]
  - Middle insomnia [None]
  - Hyperhidrosis [None]
  - Inflammation [None]

NARRATIVE: CASE EVENT DATE: 20190823
